FAERS Safety Report 25090200 (Version 2)
Quarter: 2025Q1

REPORT INFORMATION
  Report Type: Spontaneous
  Country: US (occurrence: US)
  Receive Date: 20250318
  Receipt Date: 20250324
  Transmission Date: 20250409
  Serious: Yes (Other)
  Sender: PFIZER
  Company Number: US-MLMSERVICE-20250306-PI437690-00060-2

PATIENT
  Age: 36 Year
  Sex: Female

DRUGS (5)
  1. AZITHROMYCIN [Suspect]
     Active Substance: AZITHROMYCIN
     Indication: Mycobacterium chelonae infection
  2. PREDNISONE [Concomitant]
     Active Substance: PREDNISONE
     Indication: Transplant failure
     Dosage: MAINTENANCE
  3. AMIKACIN [Concomitant]
     Active Substance: AMIKACIN
     Indication: Mycobacterium chelonae infection
     Dosage: 25 MG/KG, EVERY 3 WEEKS
     Route: 042
  4. IMIPENEM [Concomitant]
     Active Substance: IMIPENEM
     Indication: Mycobacterium chelonae infection
     Dosage: FREQ:12 H;RENALLY DOSED
     Route: 042
  5. FLUCONAZOLE [Concomitant]
     Active Substance: FLUCONAZOLE
     Indication: Candida infection
     Dosage: 200 MG, 1X/DAY
     Route: 048

REACTIONS (2)
  - Hallucination [Recovered/Resolved]
  - Off label use [Unknown]
